FAERS Safety Report 5569740-5 (Version None)
Quarter: 2007Q4

REPORT INFORMATION
  Report Type: 
  Country: None (occurrence: None)
  Receive Date: 20071217
  Receipt Date: 20071204
  Transmission Date: 20080405
  Serious: No
  Sender: FDA-Public Use
  Company Number: B0499483A

PATIENT
  Sex: Male

DRUGS (8)
  1. ZIDOVUDINE [Suspect]
     Indication: PROPHYLAXIS AGAINST HIV INFECTION
     Dosage: 4 MG/KG / PER DAY
  2. LAMIVUDINE [Suspect]
     Indication: PROPHYLAXIS AGAINST HIV INFECTION
     Dosage: 4 MG/KG / PER DAY
  3. LOPINAVIR (FORMULATION UNKNOWN) (LOPINAVIR) [Suspect]
     Indication: PROPHYLAXIS AGAINST HIV INFECTION
     Dosage: 460 MG/M2 / PER DAY
  4. RITONAVIR (FORMULATION UNKNOWN) (RITONAVIR) [Suspect]
     Indication: PROPHYLAXIS AGAINST HIV INFECTION
     Dosage: 115 MG/M2 / PER DAY
  5. LAMIVUDINE [Suspect]
     Indication: HIV TEST POSITIVE
     Dosage: TRANSPLACENTARY
     Route: 064
  6. LOPINAVIR AND RITONAVIR [Suspect]
     Indication: HIV TEST POSITIVE
     Dosage: TRANSPLACENTARY
     Route: 064
  7. TENOFOVIR (FORMULATION UNKNOWN) (TENOFOVIR) [Suspect]
     Indication: HIV TEST POSITIVE
     Dosage: TRANSPLACENTARY
     Route: 064
  8. STEROID (FORMULATION UNKNOWN) (STEROID) [Suspect]
     Indication: PREMATURE RUPTURE OF MEMBRANES
     Dosage: TRANSPLACENTARY
     Route: 064

REACTIONS (8)
  - ATRIOVENTRICULAR BLOCK COMPLETE [None]
  - BLOOD LACTIC ACID INCREASED [None]
  - CARDIAC OUTPUT DECREASED [None]
  - CONGESTIVE CARDIOMYOPATHY [None]
  - DRUG EXPOSURE DURING PREGNANCY [None]
  - DRUG TOXICITY [None]
  - NO THERAPEUTIC RESPONSE [None]
  - PREMATURE BABY [None]
